FAERS Safety Report 7291083-2 (Version None)
Quarter: 2011Q1

REPORT INFORMATION
  Report Type: 
  Country: None (occurrence: None)
  Receive Date: 20110214
  Receipt Date: 20110203
  Transmission Date: 20110831
  Serious: Yes (Hospitalization)
  Sender: FDA-Public Use
  Company Number: KR-TEVA-266028ISR

PATIENT
  Sex: Female

DRUGS (19)
  1. ACETYLSALICYLIC ACID [Concomitant]
     Route: 048
     Dates: start: 20110105, end: 20110124
  2. REBAMIPIDE [Concomitant]
     Indication: PROPHYLAXIS
     Dates: start: 20101230, end: 20110118
  3. METOCLOPRAMIDE HCL [Concomitant]
     Indication: VOMITING
     Route: 042
     Dates: start: 20101207, end: 20101207
  4. PARACETAMOL [Concomitant]
     Indication: BACK PAIN
     Route: 048
     Dates: start: 20101213, end: 20101213
  5. RANITIDINE [Concomitant]
     Route: 048
     Dates: start: 20110109, end: 20110125
  6. ITOPRIDE [Concomitant]
     Route: 048
  7. ALMAGATE [Concomitant]
     Indication: PROPHYLAXIS
     Route: 048
     Dates: start: 20101216
  8. MEDILAC-S [Concomitant]
     Indication: PROPHYLAXIS
     Route: 048
     Dates: start: 20101206, end: 20101206
  9. RABEPRAZOLE SODIUM [Concomitant]
     Indication: PROPHYLAXIS
     Route: 048
     Dates: start: 20101206, end: 20101206
  10. TRAMADOL [Concomitant]
     Indication: BACK PAIN
     Route: 048
     Dates: start: 20101206, end: 20101206
  11. PETHIDINE HYDROCHLORIDE [Concomitant]
     Indication: BIOPSY BONE MARROW
     Route: 030
     Dates: start: 20101207, end: 20101207
  12. ACETYLSALICYLIC ACID [Concomitant]
     Indication: PROPHYLAXIS
     Route: 048
     Dates: start: 20101216, end: 20101224
  13. PAMIDRONATE DISODIUM [Concomitant]
     Indication: OSTEOPOROSIS
     Route: 042
     Dates: start: 20101230, end: 20101230
  14. PAMIDRONATE DISODIUM [Concomitant]
     Indication: COMPRESSION FRACTURE
     Route: 042
     Dates: start: 20101230
  15. DEXAMETHASONE [Suspect]
     Indication: MULTIPLE MYELOMA
     Dates: start: 20101216
  16. LENALIDOMIDE [Suspect]
     Indication: MULTIPLE MYELOMA
     Route: 048
     Dates: start: 20101216
  17. RANITIDINE [Concomitant]
     Indication: PROPHYLAXIS
     Route: 042
     Dates: start: 20101207, end: 20101207
  18. KETOPROFEN [Concomitant]
     Indication: BACK PAIN
     Dates: start: 20101207, end: 20101207
  19. ULTRACET [Concomitant]
     Indication: BACK PAIN
     Route: 048

REACTIONS (4)
  - SPINAL COMPRESSION FRACTURE [None]
  - PULMONARY EMBOLISM [None]
  - BACK PAIN [None]
  - RIB FRACTURE [None]
